FAERS Safety Report 14991562 (Version 1)
Quarter: 2018Q2

REPORT INFORMATION
  Report Type: Spontaneous
  Country: US (occurrence: US)
  Receive Date: 20180517
  Receipt Date: 20180517
  Transmission Date: 20180711
  Serious: No
  Sender: FDA-Public Use
  Company Number: None

PATIENT
  Age: 79 Year
  Sex: Female

DRUGS (1)
  1. CAPECITABINE TAB 500MG [Suspect]
     Active Substance: CAPECITABINE
     Dosage: MONDAY TO FRIDAY
     Route: 048

REACTIONS (4)
  - Lip dry [None]
  - Nasopharyngitis [None]
  - Dry skin [None]
  - International normalised ratio abnormal [None]

NARRATIVE: CASE EVENT DATE: 20180507
